FAERS Safety Report 4569703-2 (Version None)
Quarter: 2005Q1

REPORT INFORMATION
  Report Type: 
  Country: None (occurrence: None)
  Receive Date: 20050201
  Receipt Date: 20050118
  Transmission Date: 20050727
  Serious: Yes (Death, Hospitalization, Other)
  Sender: FDA-Public Use
  Company Number: 2005015577

PATIENT
  Age: 23 Year
  Sex: Male

DRUGS (4)
  1. UNASYN [Suspect]
     Indication: PYREXIA
     Dosage: 2.25 GRAM (750 MG, 3 IN 1 D), INTRAVENOUS
     Route: 042
     Dates: start: 20050102, end: 20050105
  2. ZYVOX SOULTION, STERILE (LINEZOLID) (LINEZOLID) [Suspect]
     Indication: PNEUMONIA
     Dosage: (3 IN 1 D) INTRAVENOUS
     Route: 042
     Dates: start: 20050106, end: 20050113
  3. LEVOFLOXACIN [Concomitant]
  4. TIENAM (CILASTATIN, IMIPENEM) [Concomitant]

REACTIONS (6)
  - CULTURE URINE POSITIVE [None]
  - METABOLIC ACIDOSIS [None]
  - RENAL FAILURE [None]
  - SEPTIC SHOCK [None]
  - STAPHYLOCOCCAL INFECTION [None]
  - THERAPY NON-RESPONDER [None]
